FAERS Safety Report 7980715-9 (Version None)
Quarter: 2011Q4

REPORT INFORMATION
  Report Type: 
  Country: None (occurrence: None)
  Receive Date: 20111214
  Receipt Date: 20111208
  Transmission Date: 20120403
  Serious: Yes (Hospitalization, Disabling)
  Sender: FDA-Public Use
  Company Number: US-BAYER-2011-118398

PATIENT
  Sex: Female

DRUGS (1)
  1. AVELOX [Suspect]
     Indication: SINUSITIS
     Dosage: UNK
     Route: 048
     Dates: start: 20110801

REACTIONS (3)
  - SCAR [None]
  - BLINDNESS UNILATERAL [None]
  - UVEITIS [None]
